FAERS Safety Report 6130107-2 (Version None)
Quarter: 2009Q1

REPORT INFORMATION
  Report Type: 
  Country: None (occurrence: None)
  Receive Date: 20090324
  Receipt Date: 20090312
  Transmission Date: 20090719
  Serious: Yes (Hospitalization, Other)
  Sender: FDA-Public Use
  Company Number: PHHY2009FR07446

PATIENT
  Sex: Male
  Weight: 96 kg

DRUGS (4)
  1. CGP 57148B T35717+ [Suspect]
     Dosage: 400 MG DAILY
     Dates: start: 20070206
  2. IKOREL [Concomitant]
     Indication: ISCHAEMIC CARDIOMYOPATHY
     Dosage: 20 MG PER DAY
     Dates: end: 20080101
  3. ISOPTIN [Concomitant]
     Indication: HYPERTENSION
     Dosage: 480 MG PER DAY
     Dates: end: 20070101
  4. VASTEN [Concomitant]
     Indication: HYPERCHOLESTEROLAEMIA
     Dosage: 20 MG PER DAY
     Dates: end: 20070101

REACTIONS (11)
  - ANGINA PECTORIS [None]
  - ANGIOPLASTY [None]
  - ARTERIAL OCCLUSIVE DISEASE [None]
  - ARTERIAL STENOSIS [None]
  - CHEST PAIN [None]
  - CORONARY ANGIOPLASTY [None]
  - CORONARY ARTERY DILATATION [None]
  - CORONARY ARTERY STENOSIS [None]
  - OEDEMA PERIPHERAL [None]
  - STENT PLACEMENT [None]
  - TRANSPLANT REJECTION [None]
